FAERS Safety Report 16340313 (Version 1)
Quarter: 2020Q3

REPORT INFORMATION
  Report Type: Spontaneous
  Country: PT (occurrence: PT)
  Receive Date: 20190522
  Receipt Date: 20190522
  Transmission Date: 20201104
  Serious: Yes (Other)
  Sender: FDA-Public Use
  Company Number: PT-LUPIN PHARMACEUTICALS INC.-2019-03048

PATIENT
  Age: 51 Year
  Sex: Female

DRUGS (3)
  1. ETORICOXIB. [Suspect]
     Active Substance: ETORICOXIB
     Indication: POSTOPERATIVE CARE
     Dosage: UNK
     Route: 065
  2. ETORICOXIB. [Suspect]
     Active Substance: ETORICOXIB
     Dosage: UNK (AT 10% IN PETROLATUM)
     Route: 062
  3. CELECOXIB. [Suspect]
     Active Substance: CELECOXIB
     Indication: PRODUCT USED FOR UNKNOWN INDICATION
     Dosage: UNK UNK, SINGLE
     Route: 062

REACTIONS (2)
  - Therapeutic product cross-reactivity [Unknown]
  - Fixed eruption [Recovered/Resolved]
